FAERS Safety Report 9240527 (Version 1)
Quarter: 2013Q2

REPORT INFORMATION
  Report Type: Spontaneous
  Country: US (occurrence: US)
  Receive Date: 20130418
  Receipt Date: 20130418
  Transmission Date: 20140414
  Serious: No
  Sender: FDA-Public Use
  Company Number: US-PFIZER INC-2013117080

PATIENT
  Age: 80 Year
  Sex: Female

DRUGS (1)
  1. XALKORI [Suspect]
     Indication: TRACHEAL CANCER
     Dosage: 250 MG, 2X/DAY
     Dates: start: 20130315

REACTIONS (4)
  - Asthenia [Unknown]
  - Hypoaesthesia [Unknown]
  - Hypoaesthesia oral [Unknown]
  - Dysgeusia [Unknown]
